FAERS Safety Report 5021194-3 (Version None)
Quarter: 2006Q2

REPORT INFORMATION
  Report Type: 
  Country: None (occurrence: None)
  Receive Date: 20060608
  Receipt Date: 20060510
  Transmission Date: 20061013
  Serious: Yes (Other)
  Sender: FDA-Public Use
  Company Number: 2006UW09257

PATIENT
  Age: 1 Year
  Sex: Male
  Weight: 9.5 kg

DRUGS (11)
  1. PULMICORT RESPULES [Suspect]
     Indication: RESPIRATORY DISORDER
     Route: 055
  2. PULMICORT RESPULES [Suspect]
     Route: 055
  3. CLONOPIN [Concomitant]
     Indication: CONVULSION
  4. KEPPRA [Concomitant]
     Indication: CONVULSION
  5. PHENOBARB [Concomitant]
     Indication: CONVULSION
  6. PREVACID [Concomitant]
     Indication: GASTROOESOPHAGEAL REFLUX DISEASE
  7. ZANTAC [Concomitant]
     Indication: GASTROOESOPHAGEAL REFLUX DISEASE
  8. TOPAMAX [Concomitant]
     Indication: CONVULSION
  9. ROBINUL [Concomitant]
     Indication: INCREASED UPPER AIRWAY SECRETION
  10. AMOXIL [Concomitant]
  11. ATROVENT [Concomitant]
     Dosage: 0900 AND 2100

REACTIONS (2)
  - CONVULSION [None]
  - EAR INFECTION [None]
